FAERS Safety Report 8005624-0 (Version None)
Quarter: 2011Q4

REPORT INFORMATION
  Report Type: 
  Country: None (occurrence: None)
  Receive Date: 20111223
  Receipt Date: 20111222
  Transmission Date: 20120403
  Serious: Yes (Death)
  Sender: FDA-Public Use
  Company Number: CL-BRISTOL-MYERS SQUIBB COMPANY-16311987

PATIENT
  Age: 36 Year

DRUGS (1)
  1. IXEMPRA KIT [Suspect]

REACTIONS (1)
  - DEATH [None]
